FAERS Safety Report 7238835-2 (Version None)
Quarter: 2011Q1

REPORT INFORMATION
  Report Type: 
  Country: None (occurrence: None)
  Receive Date: 20110121
  Receipt Date: 20110111
  Transmission Date: 20110831
  Serious: Yes (Hospitalization)
  Sender: FDA-Public Use
  Company Number: PHHY2011JP02574

PATIENT
  Age: 80 Year
  Sex: Male

DRUGS (3)
  1. EXFORGE [Suspect]
     Indication: HYPERTENSION
     Dosage: 1 DF, UNK, DAILY
     Route: 048
     Dates: start: 20101224
  2. LEUPLIN [Concomitant]
     Dosage: UNK
     Route: 058
  3. TAMSULOSIN HCL [Concomitant]
     Dosage: UNK
     Route: 048

REACTIONS (1)
  - PNEUMONIA [None]
